FAERS Safety Report 8522474-7 (Version None)
Quarter: 2012Q3

REPORT INFORMATION
  Report Type: 
  Country: None (occurrence: None)
  Receive Date: 20120719
  Receipt Date: 20120712
  Transmission Date: 20120928
  Serious: Yes (Other)
  Sender: FDA-Public Use
  Company Number: US-ELI_LILLY_AND_COMPANY-US201207004340

PATIENT
  Sex: Male

DRUGS (3)
  1. EFFIENT [Suspect]
     Indication: STENT PLACEMENT
     Dosage: 60 MG, LOADING DOSE
     Route: 048
  2. EFFIENT [Suspect]
     Dosage: 10 MG, QD, MAINTENANCE DOSE
     Route: 048
  3. EFFIENT [Suspect]
     Dosage: 10 MG, BID
     Route: 048

REACTIONS (2)
  - DEVICE OCCLUSION [None]
  - OVERDOSE [None]
